FAERS Safety Report 17890444 (Version 1)
Quarter: 2020Q2

REPORT INFORMATION
  Report Type: Spontaneous
  Country: FR (occurrence: FR)
  Receive Date: 20200612
  Receipt Date: 20200612
  Transmission Date: 20200714
  Serious: Yes (Other)
  Sender: FDA-Public Use
  Company Number: FR-BRISTOL-MYERS SQUIBB COMPANY-BMS-2020-044771

PATIENT
  Age: 75 Year
  Sex: Male
  Weight: 74 kg

DRUGS (1)
  1. NIVOLUMAB [Suspect]
     Active Substance: NIVOLUMAB
     Indication: BASAL CELL CARCINOMA
     Dosage: UNK, EVERY 15 DAYS, ROUTE OF ADMINISTRATION: PERFUSION
     Route: 050
     Dates: start: 201911

REACTIONS (9)
  - Malignant neoplasm progression [Unknown]
  - Mucous stools [Unknown]
  - Paraesthesia [Unknown]
  - Peripheral swelling [Unknown]
  - Burning sensation [Unknown]
  - Tumour haemorrhage [Unknown]
  - Hypoaesthesia [Unknown]
  - Intentional product use issue [Unknown]
  - Haematochezia [Unknown]

NARRATIVE: CASE EVENT DATE: 202003
